FAERS Safety Report 8887406 (Version 2)
Quarter: 2012Q4

REPORT INFORMATION
  Report Type: 
  Country: US (occurrence: US)
  Receive Date: 20121105
  Receipt Date: 20121108
  Transmission Date: 20130627
  Serious: No
  Sender: FDA-Public Use
  Company Number: US-PFIZER INC-2012273558

PATIENT
  Sex: Male

DRUGS (1)
  1. GABAPENTIN [Suspect]
     Indication: CHRONIC PAIN
     Dosage: 1800 mg, 1x/day

REACTIONS (3)
  - Drug ineffective [Unknown]
  - Asthenopia [Unknown]
  - Balance disorder [Unknown]
